FAERS Safety Report 7285232-X (Version None)
Quarter: 2011Q1

REPORT INFORMATION
  Report Type: 
  Country: None (occurrence: None)
  Receive Date: 20110210
  Receipt Date: 20110131
  Transmission Date: 20110831
  Serious: Yes (Hospitalization)
  Sender: FDA-Public Use
  Company Number: AT-JNJFOC-20110200307

PATIENT
  Age: 50 Year
  Sex: Male

DRUGS (18)
  1. RISPERDAL [Suspect]
     Dosage: 3
     Route: 048
  2. NEUROTOP [Suspect]
     Dosage: 150
     Route: 065
  3. NEUROTOP [Suspect]
     Dosage: 900
     Route: 065
  4. MIRTABENE [Suspect]
     Dosage: 90
     Route: 065
  5. SEROQUEL [Suspect]
     Dosage: 125
     Route: 065
  6. NEUROTOP [Suspect]
     Indication: ILL-DEFINED DISORDER
     Dosage: 300
     Route: 065
  7. NEUROTOP [Suspect]
     Dosage: 600
     Route: 065
  8. NEUROTOP [Suspect]
     Dosage: 900
     Route: 065
  9. SEROQUEL [Suspect]
     Dosage: 100
     Route: 065
  10. MIRTABENE [Suspect]
     Indication: ILL-DEFINED DISORDER
     Dosage: 45
     Route: 065
  11. SEROQUEL [Suspect]
     Dosage: 150
     Route: 065
  12. NEUROTOP [Suspect]
     Dosage: 600
     Route: 065
  13. RISPERDAL [Suspect]
     Indication: PRODUCT USED FOR UNKNOWN INDICATION
     Route: 048
  14. RISPERDAL [Suspect]
     Dosage: 2
     Route: 048
  15. SEROQUEL [Suspect]
     Indication: ILL-DEFINED DISORDER
     Dosage: 75
     Route: 065
  16. MIRTABENE [Suspect]
     Dosage: 60
     Route: 065
  17. MIRTABENE [Suspect]
     Dosage: 75
     Route: 065
  18. TEMESTA [Suspect]
     Indication: ILL-DEFINED DISORDER
     Dosage: 1
     Route: 065

REACTIONS (4)
  - AKATHISIA [None]
  - HYPONATRAEMIA [None]
  - THROMBOCYTOPENIA [None]
  - RESTLESSNESS [None]
